FAERS Safety Report 4417740-0 (Version None)
Quarter: 2004Q3

REPORT INFORMATION
  Report Type: 
  Country: None (occurrence: None)
  Receive Date: 20040803
  Receipt Date: 20021022
  Transmission Date: 20050211
  Serious: Yes (Other)
  Sender: FDA-Public Use
  Company Number: EMADSS2001004234

PATIENT
  Age: 43 Year
  Sex: Female
  Weight: 91.6 kg

DRUGS (1)
  1. TOPIRAMATE [Suspect]
     Indication: OBESITY
     Dosage: 96 MG IN 1 DAY ORAL
     Route: 048
     Dates: start: 20010425, end: 20010504

REACTIONS (4)
  - ALANINE AMINOTRANSFERASE INCREASED [None]
  - ASPARTATE AMINOTRANSFERASE INCREASED [None]
  - BLOOD ALKALINE PHOSPHATASE INCREASED [None]
  - HEPATIC ENZYME INCREASED [None]
